FAERS Safety Report 9536495 (Version 1)
Quarter: 2013Q2

REPORT INFORMATION
  Report Type: Spontaneous
  Country: US (occurrence: None)
  Receive Date: 20130507
  Receipt Date: 20130507
  Transmission Date: 20140414
  Serious: No
  Sender: FDA-Public Use
  Company Number: PHEH2012US024457

PATIENT
  Age: 70 Year
  Sex: Female
  Weight: 44 kg

DRUGS (19)
  1. AFINITOR (RAD) TABLET, 10MG [Suspect]
     Route: 048
  2. ALLEGRA [Concomitant]
  3. ASTELIN (AZELASTINE HYDROCHLORIDE) [Concomitant]
  4. ANDROGEL (TESTOSTERONE) [Concomitant]
  5. AROMASIN (EXEMESTANE) TABLET [Concomitant]
  6. VICODIN ES (HYDROCODONE BITARTRATE, PARACETAMOL) TABLET [Concomitant]
  7. LIDOCAINE (LIDOCAINE) [Concomitant]
  8. DYAZIDE (HYDROCHLOROTHIAZIDE, TRIAMTERENE) CAPSULE [Concomitant]
  9. DETROL LA (TOLTERODINE L-TARTRATE) [Concomitant]
  10. DIOVAN (VALSARTAN) [Concomitant]
  11. LYRICA (PREGABALIN) [Concomitant]
  12. MIRTAZAPINE (MIRTAZAPINE) [Concomitant]
  13. POTASSIUM (POTASSIUM) TABLET [Concomitant]
  14. NEXIUM 1-2-3 (AMOXICILLIN TRIHYDRATE, CLARITHROMYCIN, ESOMEPRAZOLE MAGNESIUM) CAPSULE [Concomitant]
  15. PROCHLORPERAZ (PROCHLORPERAZINE MALEATE), 10 MG [Concomitant]
  16. LACTASE (TILACTASE) [Concomitant]
  17. SENNA (SENNA ALEXANDRINA) TABLET [Concomitant]
  18. CALCIUM CITRAMATE (CALCIUM CITRATE, CALCIUM MALATE) TABLET [Concomitant]
  19. ZOMETA (ZOLEDRONIC ACID) [Concomitant]

REACTIONS (4)
  - Asthenia [None]
  - Lethargy [None]
  - Epistaxis [None]
  - Sinusitis [None]
